FAERS Safety Report 4781995-3 (Version None)
Quarter: 2005Q3

REPORT INFORMATION
  Report Type: 
  Country: None (occurrence: None)
  Receive Date: 20050914
  Receipt Date: 20041012
  Transmission Date: 20060218
  Serious: Yes (Death)
  Sender: FDA-Public Use
  Company Number: 163-20785-04100288

PATIENT
  Age: 61 Year
  Sex: Male

DRUGS (2)
  1. THALOMID [Suspect]
     Indication: RENAL CANCER METASTATIC
     Dosage: 100 MG, QD, ORAL; 200 MG, QD, ORAL
     Route: 048
     Dates: start: 20040625, end: 20040101
  2. THALOMID [Suspect]
     Indication: RENAL CANCER METASTATIC
     Dosage: 100 MG, QD, ORAL; 200 MG, QD, ORAL
     Route: 048
     Dates: start: 20040101

REACTIONS (1)
  - DISEASE PROGRESSION [None]
